FAERS Safety Report 9304862 (Version 1)
Quarter: 2013Q2

REPORT INFORMATION
  Report Type: Spontaneous
  Country: US (occurrence: None)
  Receive Date: 20130521
  Receipt Date: 20130521
  Transmission Date: 20140414
  Serious: Yes (Other)
  Sender: FDA-Public Use
  Company Number: None

PATIENT
  Age: 55 Year
  Sex: Female

DRUGS (1)
  1. INCIVEK [Suspect]
     Indication: HEPATITIS C
     Route: 048
     Dates: start: 20130303, end: 20130517

REACTIONS (11)
  - Rash [None]
  - Rash [None]
  - Wound [None]
  - Rash pustular [None]
  - Nasal ulcer [None]
  - Stomatitis [None]
  - Speech disorder [None]
  - Aphagia [None]
  - Proctalgia [None]
  - Proctalgia [None]
  - Anaemia [None]
